FAERS Safety Report 13480739 (Version 4)
Quarter: 2019Q2

REPORT INFORMATION
  Report Type: Report from Study
  Country: US (occurrence: US)
  Receive Date: 20170425
  Receipt Date: 20190628
  Transmission Date: 20190711
  Serious: Yes (Hospitalization)
  Sender: FDA-Public Use
  Company Number: US-ACTELION-A-US2017-152983

PATIENT
  Age: 49 Year
  Sex: Female

DRUGS (12)
  1. LORAZEPAM. [Concomitant]
     Active Substance: LORAZEPAM
  2. HYDROCODONE/ACETAMINOPHEN [Concomitant]
     Active Substance: ACETAMINOPHEN\HYDROCODONE
  3. REVATIO [Concomitant]
     Active Substance: SILDENAFIL CITRATE
  4. CIPROFLOXACIN. [Concomitant]
     Active Substance: CIPROFLOXACIN
  5. OPSUMIT [Suspect]
     Active Substance: MACITENTAN
     Indication: PULMONARY ARTERIAL HYPERTENSION
     Dosage: 10 MG, QD
     Route: 048
     Dates: start: 2013
  6. LEVOTHYROXIN [Concomitant]
     Active Substance: LEVOTHYROXINE
  7. SPIRONOLACTONE. [Concomitant]
     Active Substance: SPIRONOLACTONE
  8. ONDANSETRON [Concomitant]
     Active Substance: ONDANSETRON
  9. SIMVASTATIN. [Concomitant]
     Active Substance: SIMVASTATIN
  10. METRONIDAZOL [Concomitant]
     Active Substance: METRONIDAZOLE
  11. FUROSEMIDE. [Concomitant]
     Active Substance: FUROSEMIDE
  12. POTASSIUM CHLORIDE. [Concomitant]
     Active Substance: POTASSIUM CHLORIDE

REACTIONS (7)
  - Pancreatitis [Not Recovered/Not Resolved]
  - Nephrolithiasis [Not Recovered/Not Resolved]
  - Pneumonia [Recovered/Resolved]
  - Influenza [Recovered/Resolved]
  - Pancreatic disorder [Not Recovered/Not Resolved]
  - Pain [Not Recovered/Not Resolved]
  - Product dose omission [Unknown]

NARRATIVE: CASE EVENT DATE: 20170410
